FAERS Safety Report 6909157-1 (Version None)
Quarter: 2010Q3

REPORT INFORMATION
  Report Type: 
  Country: None (occurrence: None)
  Receive Date: 20100716
  Receipt Date: 20100322
  Transmission Date: 20110219
  Serious: Yes (Hospitalization, Other)
  Sender: FDA-Public Use
  Company Number: 2010025863

PATIENT
  Age: 81 Year
  Sex: Female
  Weight: 79.8 kg

DRUGS (1)
  1. CELEBREX [Suspect]
     Indication: BACK PAIN
     Dosage: 200 MG, 1X/DAY, ORAL
     Route: 048
     Dates: start: 20100218, end: 20100220

REACTIONS (3)
  - DIVERTICULUM [None]
  - GASTRITIS [None]
  - RECTAL HAEMORRHAGE [None]
